FAERS Safety Report 20891848 (Version 1)
Quarter: 2022Q2

REPORT INFORMATION
  Report Type: Spontaneous
  Country: HU (occurrence: HU)
  Receive Date: 20220530
  Receipt Date: 20220530
  Transmission Date: 20220721
  Serious: Yes (Hospitalization, Other)
  Sender: FDA-Public Use
  Company Number: None

PATIENT
  Age: 7 Year
  Sex: Female
  Weight: 14 kg

DRUGS (11)
  1. FLUCONAZOLE [Interacting]
     Active Substance: FLUCONAZOLE
     Indication: Oral candidiasis
     Dosage: UNK
     Dates: start: 20220120, end: 20220202
  2. RAPAMUNE [Interacting]
     Active Substance: SIROLIMUS
     Indication: Lymphangiectasia intestinal
     Dosage: 1.5 MG/M2
     Route: 048
     Dates: start: 20211209, end: 20220202
  3. HUMAN ALBUMIN BIOTEST [Concomitant]
     Dosage: UNK
     Dates: start: 20210604
  4. CITROKALCIUM [Concomitant]
     Indication: Mineral supplementation
     Dosage: UNK
     Dates: start: 2018
  5. FUROSEMIDE [Concomitant]
     Active Substance: FUROSEMIDE
     Indication: Oedema
     Dosage: UNK (FUROSEMID CHINOIN)
     Dates: start: 20210604
  6. KALIUM-R [Concomitant]
     Indication: Mineral supplementation
     Dosage: UNK
     Dates: start: 20210606
  7. SPIRONOLACTONE [Concomitant]
     Active Substance: SPIRONOLACTONE
     Indication: Oedema
     Dosage: UNK
     Dates: start: 20210620
  8. SULFAMETHOXAZOLE\TRIMETHOPRIM [Concomitant]
     Active Substance: SULFAMETHOXAZOLE\TRIMETHOPRIM
     Indication: Prophylaxis
     Dosage: UNK
     Dates: start: 20211209, end: 20220210
  9. PROPRANOLOL [Concomitant]
     Active Substance: PROPRANOLOL HYDROCHLORIDE
     Indication: Lymphangiectasia intestinal
     Dosage: UNK
     Dates: start: 20211106, end: 20220203
  10. PANTOPRAZOLE SODIUM [Concomitant]
     Active Substance: PANTOPRAZOLE SODIUM
     Dosage: UNK
     Dates: start: 20210607
  11. AMLODIPINE BESYLATE [Concomitant]
     Active Substance: AMLODIPINE BESYLATE
     Indication: Hypertension
     Dosage: UNK (AMLODIPIN PHARMA VIM)
     Dates: start: 2018

REACTIONS (7)
  - Clostridium difficile infection [Unknown]
  - Diarrhoea [Recovered/Resolved]
  - Bradycardia [Unknown]
  - Drug interaction [Unknown]
  - Off label use [Unknown]
  - Product use issue [Unknown]
  - Contraindicated product administered [Unknown]

NARRATIVE: CASE EVENT DATE: 20220101
